FAERS Safety Report 22752607 (Version 3)
Quarter: 2024Q1

REPORT INFORMATION
  Report Type: Report from Study
  Country: CA (occurrence: CA)
  Receive Date: 20230726
  Receipt Date: 20240201
  Transmission Date: 20240410
  Serious: Yes (Other)
  Sender: FDA-Public Use
  Company Number: CA-OTSUKA-2022_044816

PATIENT
  Age: 73 Year
  Sex: Female

DRUGS (5)
  1. CEDAZURIDINE\DECITABINE [Suspect]
     Active Substance: CEDAZURIDINE\DECITABINE
     Indication: Acute myeloid leukaemia
     Dosage: 1 DF (35 MG DECITABINE AND 100 MG CEDAZURIDINE), QD (ON DAY 1 THROUGH 5)
     Route: 065
     Dates: start: 20220906
  2. CEDAZURIDINE\DECITABINE [Suspect]
     Active Substance: CEDAZURIDINE\DECITABINE
     Dosage: 1 DF (35 MG DECITABINE AND 100 MG CEDAZURIDINE) DAILY ON DAYS 1-4 (4 TABLETS) EVERY 28 DAYS
     Route: 065
     Dates: start: 20230206
  3. CEDAZURIDINE\DECITABINE [Suspect]
     Active Substance: CEDAZURIDINE\DECITABINE
     Dosage: UNK (35 MG DECITABINE AND 100 MG CEDAZURIDINE), 5 WEEKS CYCLE
     Route: 065
     Dates: start: 20230911
  4. CEDAZURIDINE\DECITABINE [Suspect]
     Active Substance: CEDAZURIDINE\DECITABINE
     Dosage: 1 DF (35 MG DECITABINE AND 100 MG CEDAZURIDINE) DAILY ON DAYS 1 THROUGH 4 EVERY 35 DAYS
     Route: 048
  5. VENCLEXTA [Suspect]
     Active Substance: VENETOCLAX
     Indication: Product used for unknown indication
     Dosage: UNK
     Route: 065
     Dates: end: 20230326

REACTIONS (10)
  - Hypokalaemia [Unknown]
  - Neutrophil count decreased [Unknown]
  - Alopecia [Unknown]
  - Bile acid malabsorption [Unknown]
  - Full blood count abnormal [Unknown]
  - Fatigue [Unknown]
  - COVID-19 [Unknown]
  - Diarrhoea [Unknown]
  - Product use in unapproved indication [Unknown]
  - Inappropriate schedule of product administration [Unknown]

NARRATIVE: CASE EVENT DATE: 20220906
